FAERS Safety Report 10233782 (Version 1)
Quarter: 2014Q1

REPORT INFORMATION
  Report Type: Spontaneous
  Country: US (occurrence: None)
  Receive Date: 20140306
  Receipt Date: 20140306
  Transmission Date: 20141002
  Serious: Yes (Other)
  Sender: FDA-Public Use
  Company Number: 163-21880-13112235

PATIENT
  Age: 43 Year
  Sex: Male
  Weight: 93.17 kg

DRUGS (12)
  1. REVLIMID (LENALIDOMIDE) (25 MILLIGRAM, CAPSULES) [Suspect]
     Indication: PLASMA CELL MYELOMA
     Dosage: 25 MG, 21 IN 28 D
     Route: 048
     Dates: start: 20130925
  2. DECADRON (DEXAMETHASONE) (UNKNOWN) [Concomitant]
  3. ASPIRIN (ACETYLSALICYLIC ACID) (TABLETS) [Concomitant]
  4. ATIVAN (LORAZEPAM) (TABLETS) [Concomitant]
  5. DEXAMETHASONE (DEXAMETHASONE) (TABLETS) [Concomitant]
  6. DILAUDID (HYDROMORPHONE HYDROCHLORIDE) (TABLETS) [Concomitant]
  7. PRILOSEC (OMEPRAZOLE) (TABLETS) [Concomitant]
  8. PROTONIX (TABLETS) [Concomitant]
  9. AMBIEN (ZOLPIDEM TARTRATE) (TABLETS) [Concomitant]
  10. NYSTATIN (NYSTATIN) (LIQUID) [Concomitant]
  11. OXYCONTIN (OXYCODONE HYDROCHLORIDE) (TABLETS) [Concomitant]
  12. SIMVASTATIN (SIMVASTATIN) (UNKNOWN) [Concomitant]

REACTIONS (3)
  - Hypersensitivity [None]
  - Rash [None]
  - Malaise [None]
